FAERS Safety Report 7563918-7 (Version None)
Quarter: 2011Q2

REPORT INFORMATION
  Report Type: 
  Country: None (occurrence: None)
  Receive Date: 20110622
  Receipt Date: 20110621
  Transmission Date: 20111010
  Serious: Yes (Other)
  Sender: FDA-Public Use
  Company Number: US-UCBSA-035824

PATIENT
  Age: 63 Year
  Sex: Female

DRUGS (4)
  1. PHENOBARBITAL [Concomitant]
     Indication: CONVULSION
     Route: 048
  2. CLONOPIN [Concomitant]
     Indication: ANXIETY
     Route: 048
  3. VIMPAT [Suspect]
     Indication: CONVULSION
     Route: 048
     Dates: start: 20110301
  4. LEVOTHYROXINE SODIUM [Concomitant]
     Indication: THYROID DISORDER
     Route: 048
     Dates: start: 20110601

REACTIONS (4)
  - SINUSITIS [None]
  - EYE OEDEMA [None]
  - EAR PAIN [None]
  - BLINDNESS UNILATERAL [None]
